FAERS Safety Report 8008164-8 (Version None)
Quarter: 2011Q4

REPORT INFORMATION
  Report Type: 
  Country: None (occurrence: None)
  Receive Date: 20111227
  Receipt Date: 20111220
  Transmission Date: 20120403
  Serious: Yes (Hospitalization, Other)
  Sender: FDA-Public Use
  Company Number: US-TEVA-314547USA

PATIENT
  Sex: Female

DRUGS (2)
  1. CLARAVIS [Suspect]
     Dosage: 80 MILLIGRAM;
     Route: 048
     Dates: start: 20110621, end: 20110822
  2. ORAL CONTRACEPTIVE NOS [Concomitant]
     Indication: CONTRACEPTION
     Route: 048

REACTIONS (2)
  - SUICIDAL BEHAVIOUR [None]
  - DEPRESSION [None]
